FAERS Safety Report 10187142 (Version 2)
Quarter: 2014Q2

REPORT INFORMATION
  Report Type: Report from Study
  Country: US (occurrence: US)
  Receive Date: 20140522
  Receipt Date: 20140530
  Transmission Date: 20141212
  Serious: Yes (Death, Other)
  Sender: FDA-Public Use
  Company Number: US-ROCHE-1403396

PATIENT
  Age: 5 Year
  Sex: Male

DRUGS (9)
  1. VISMODEGIB [Suspect]
     Indication: BRAIN STEM GLIOMA
     Dosage: 150-300MG DAILY AS PER PROTCOL
     Route: 048
     Dates: start: 20130809, end: 20131101
  2. DEXAMETHASONE [Concomitant]
  3. IBUPROFEN [Concomitant]
  4. TYLENOL [Concomitant]
  5. TRAZODONE [Concomitant]
  6. LACRI-LUBE (UNITED STATES) [Concomitant]
  7. PREVACID [Concomitant]
  8. ACETAZOLAMIDE [Concomitant]
  9. LORTAB [Concomitant]

REACTIONS (2)
  - Death [Fatal]
  - Rash [Recovered/Resolved]
